FAERS Safety Report 15529969 (Version 2)
Quarter: 2018Q4

REPORT INFORMATION
  Report Type: Spontaneous
  Country: US (occurrence: US)
  Receive Date: 20181018
  Receipt Date: 20181213
  Transmission Date: 20190205
  Serious: No
  Sender: FDA-Public Use
  Company Number: US-AMGEN-USASP2018131036

PATIENT
  Sex: Female

DRUGS (8)
  1. CELECOXIB. [Concomitant]
     Active Substance: CELECOXIB
     Dosage: 200 MG, UNK
  2. LATANOPROST. [Concomitant]
     Active Substance: LATANOPROST
     Dosage: 0.005 %, UNK
  3. REPATHA [Suspect]
     Active Substance: EVOLOCUMAB
     Indication: HYPERCHOLESTEROLAEMIA
     Dosage: 140 MG/ML, Q2WK
     Route: 058
     Dates: start: 20170216
  4. ACEBUTOLOL [Concomitant]
     Active Substance: ACEBUTOLOL
     Dosage: 200 MG, UNK
  5. AMOXICILLIN. [Concomitant]
     Active Substance: AMOXICILLIN
     Dosage: 500 MG, UNK
  6. ECONAZOLE NITRATE. [Concomitant]
     Active Substance: ECONAZOLE NITRATE
     Dosage: 200 MG, UNK
  7. REPATHA [Suspect]
     Active Substance: EVOLOCUMAB
     Indication: ARTERIOSCLEROSIS CORONARY ARTERY
     Dosage: UNK
     Route: 058
  8. YUVAFEM [Concomitant]
     Active Substance: ESTRADIOL HEMIHYDRATE
     Dosage: 10 MCG, UNK

REACTIONS (2)
  - Nasopharyngitis [Not Recovered/Not Resolved]
  - Rhinorrhoea [Unknown]
